FAERS Safety Report 5832924-2 (Version None)
Quarter: 2008Q3

REPORT INFORMATION
  Report Type: 
  Country: None (occurrence: None)
  Receive Date: 20080804
  Receipt Date: 20080728
  Transmission Date: 20090109
  Serious: Yes (Hospitalization)
  Sender: FDA-Public Use
  Company Number: US-BOEHRINGER INGELHEIM GMBH, GERMANY-2008-BP-10966BP

PATIENT
  Sex: Male

DRUGS (5)
  1. FLOMAX [Suspect]
     Indication: PROSTATOMEGALY
     Route: 048
     Dates: start: 20080101
  2. FLOMAX [Suspect]
     Indication: URINARY TRACT OBSTRUCTION
  3. XANAX [Concomitant]
     Indication: ANXIETY
  4. CIPRO [Concomitant]
     Indication: URINARY TRACT OBSTRUCTION
  5. CIPRO [Concomitant]
     Indication: THERAPEUTIC PROCEDURE

REACTIONS (4)
  - ABNORMAL SENSATION IN EYE [None]
  - DIZZINESS [None]
  - FATIGUE [None]
  - URINARY TRACT OBSTRUCTION [None]
